FAERS Safety Report 4761545-8 (Version None)
Quarter: 2005Q3

REPORT INFORMATION
  Report Type: 
  Country: None (occurrence: None)
  Receive Date: 20050906
  Receipt Date: 20050830
  Transmission Date: 20060218
  Serious: Yes (Death)
  Sender: FDA-Public Use
  Company Number: PHFR2005GB02880

PATIENT
  Age: 56 Year
  Sex: Female

DRUGS (6)
  1. CARBAMAZEPINE [Suspect]
     Indication: HYPOMANIA
     Dosage: 200 MG/DAY
     Route: 048
     Dates: start: 20050705
  2. LITHIUM CARBONATE [Concomitant]
     Dosage: 600-1200 MG/DAY
     Route: 065
     Dates: start: 19980101
  3. RISPERIDONE [Concomitant]
     Dosage: 3 MG, BID
     Route: 065
     Dates: start: 20050628
  4. AMLODIPINE [Concomitant]
     Dosage: 5 MG/DAY
     Route: 065
  5. METFORMIN [Concomitant]
     Dosage: 500 MG, BID
     Route: 065
  6. OLANZAPINE [Concomitant]
     Dosage: UPTO 15MG
     Route: 065
     Dates: start: 20030101, end: 20050628

REACTIONS (1)
  - HEPATORENAL FAILURE [None]
